FAERS Safety Report 13060946 (Version 1)
Quarter: 2016Q4

REPORT INFORMATION
  Report Type: Spontaneous
  Country: US (occurrence: US)
  Receive Date: 20161225
  Receipt Date: 20161225
  Transmission Date: 20170207
  Serious: No
  Sender: FDA-Public Use
  Company Number: US-ABBVIE-16P-163-1716899-00

PATIENT
  Age: 23 Year
  Sex: Female

DRUGS (1)
  1. LUPRON DEPOT [Suspect]
     Active Substance: LEUPROLIDE ACETATE
     Indication: ENDOMETRIOSIS
     Route: 058
     Dates: start: 20160831, end: 20160831

REACTIONS (4)
  - Injection site pain [Recovering/Resolving]
  - Hot flush [Not Recovered/Not Resolved]
  - Drug dispensing error [Not Recovered/Not Resolved]
  - Wrong drug administered [Not Recovered/Not Resolved]

NARRATIVE: CASE EVENT DATE: 20160831
